FAERS Safety Report 6473293-7 (Version None)
Quarter: 2009Q4

REPORT INFORMATION
  Report Type: 
  Country: None (occurrence: None)
  Receive Date: 20091204
  Receipt Date: 20080602
  Transmission Date: 20100525
  Serious: Yes (Hospitalization)
  Sender: FDA-Public Use
  Company Number: US-ELI_LILLY_AND_COMPANY-US200806000258

PATIENT
  Age: 86 Year
  Sex: Male

DRUGS (3)
  1. GEMZAR [Suspect]
     Indication: METASTASES TO BONE
     Dates: start: 20080521
  2. HYDROCODONE [Concomitant]
  3. TYLENOL (CAPLET) [Concomitant]

REACTIONS (8)
  - ABNORMAL BEHAVIOUR [None]
  - AGGRESSION [None]
  - ANAEMIA [None]
  - ANGER [None]
  - BODY TEMPERATURE INCREASED [None]
  - CONFUSIONAL STATE [None]
  - EATING DISORDER [None]
  - MENTAL DISORDER [None]
